FAERS Safety Report 18279465 (Version 1)
Quarter: 2020Q3

REPORT INFORMATION
  Report Type: Spontaneous
  Country: DE (occurrence: DE)
  Receive Date: 20200917
  Receipt Date: 20200917
  Transmission Date: 20201103
  Serious: Yes (Other)
  Sender: FDA-Public Use
  Company Number: DE-B.I. PHARMACEUTICALS,INC./RIDGEFIELD-2020-BI-045710

PATIENT
  Age: 47 Year
  Sex: Female

DRUGS (1)
  1. GILOTRIF [Suspect]
     Active Substance: AFATINIB
     Indication: ADENOCARCINOMA
     Dates: start: 201805

REACTIONS (7)
  - Adenocarcinoma [Unknown]
  - Pathological fracture [Unknown]
  - Small cell lung cancer [Unknown]
  - Neoplasm progression [Unknown]
  - Pleural effusion [Unknown]
  - Pericardial effusion [Unknown]
  - Adenocarcinoma [Unknown]

NARRATIVE: CASE EVENT DATE: 201905
